FAERS Safety Report 18674023 (Version 1)
Quarter: 2020Q4

REPORT INFORMATION
  Report Type: Spontaneous
  Country: US (occurrence: US)
  Receive Date: 20201229
  Receipt Date: 20201229
  Transmission Date: 20210114
  Serious: Yes (Death, Other)
  Sender: FDA-Public Use
  Company Number: US-AMGEN-USASP2020210869

PATIENT

DRUGS (2)
  1. BEVACIZUMAB. [Suspect]
     Active Substance: BEVACIZUMAB
     Indication: HEPATOCELLULAR CARCINOMA
     Dosage: UNK
     Route: 065
  2. ATEZOLIZUMAB. [Concomitant]
     Active Substance: ATEZOLIZUMAB
     Indication: HEPATOCELLULAR CARCINOMA
     Dosage: UNK

REACTIONS (9)
  - Off label use [Unknown]
  - Rash [Unknown]
  - Transaminases increased [Unknown]
  - Toxicity to various agents [Unknown]
  - Disease progression [Unknown]
  - Blood thyroid stimulating hormone abnormal [Unknown]
  - Therapy partial responder [Unknown]
  - Death [Fatal]
  - Fatigue [Unknown]
